FAERS Safety Report 19077595 (Version 1)
Quarter: 2021Q1

REPORT INFORMATION
  Report Type: Spontaneous
  Country: ES (occurrence: ES)
  Receive Date: 20210331
  Receipt Date: 20210331
  Transmission Date: 20210420
  Serious: Yes (Other)
  Sender: FDA-Public Use
  Company Number: ES-PFIZER INC-2021333548

PATIENT
  Age: 40 Year
  Sex: Male

DRUGS (2)
  1. XELJANZ [Suspect]
     Active Substance: TOFACITINIB CITRATE
     Dosage: 5 MG, 2X/DAY
     Dates: start: 2021
  2. XELJANZ [Suspect]
     Active Substance: TOFACITINIB CITRATE
     Indication: PSORIATIC ARTHROPATHY
     Dosage: UNK
     Dates: start: 201910, end: 202102

REACTIONS (7)
  - Seizure [Recovered/Resolved]
  - Hypokalaemia [Recovered/Resolved]
  - Malabsorption [Recovered/Resolved]
  - Jejunal perforation [Recovered/Resolved]
  - Peritonitis [Recovered/Resolved]
  - Appendicitis [Recovered/Resolved]
  - Iron deficiency anaemia [Recovered/Resolved]

NARRATIVE: CASE EVENT DATE: 202003
